FAERS Safety Report 14150024 (Version 4)
Quarter: 2017Q4

REPORT INFORMATION
  Report Type: Report from Study
  Country: JP (occurrence: JP)
  Receive Date: 20171101
  Receipt Date: 20171207
  Transmission Date: 20180321
  Serious: Yes (Hospitalization)
  Sender: FDA-Public Use
  Company Number: JP-AMGEN-JPNCT2017164855

PATIENT
  Age: 74 Year
  Sex: Male

DRUGS (10)
  1. GASTER [Concomitant]
     Active Substance: FAMOTIDINE
     Dosage: 20 MG, AS NECESSARY
     Route: 048
     Dates: start: 20160401, end: 20171030
  2. GLIMEPIRIDE. [Concomitant]
     Active Substance: GLIMEPIRIDE
     Dosage: 1 MG ONCE IN THE MORNING AND 0.5 MG ONCE IN THE EVENING
     Route: 048
     Dates: start: 20140624
  3. EVOLOCUMAB [Suspect]
     Active Substance: EVOLOCUMAB
     Indication: HYPERCHOLESTEROLAEMIA
     Dosage: 420 MG, QMO
     Route: 058
     Dates: start: 20130403
  4. PREFILLED AUTOINJECTOR/PEN [Suspect]
     Active Substance: DEVICE
     Indication: HYPERCHOLESTEROLAEMIA
     Dosage: UNK
     Route: 058
     Dates: start: 20140307
  5. VILDAGLIPTIN [Concomitant]
     Active Substance: VILDAGLIPTIN
     Dosage: 50 MG, BID
     Route: 048
     Dates: start: 20160525
  6. KAKKONTO [Concomitant]
     Active Substance: HERBALS
     Dosage: 2.5 G, AS NECESSARY
     Route: 048
     Dates: start: 20170117, end: 20171030
  7. PIOGLITAZONE. [Concomitant]
     Active Substance: PIOGLITAZONE
     Dosage: 15 MG, QD
     Route: 048
     Dates: start: 20140624
  8. MEVALOTIN [Concomitant]
     Active Substance: PRAVASTATIN SODIUM
     Dosage: 5 MG, QOD
     Route: 048
     Dates: start: 20130403
  9. METFORMIN HYDROCHLORIDE. [Concomitant]
     Active Substance: METFORMIN HYDROCHLORIDE
     Dosage: 250 MG, BID
     Route: 048
     Dates: start: 20160525
  10. THYRADIN S [Concomitant]
     Active Substance: LEVOTHYROXINE SODIUM
     Dosage: 12.5 MUG 5 TIMES A WEEK AND 25 MUG QD
     Route: 048
     Dates: start: 20170323

REACTIONS (1)
  - Embolic cerebral infarction [Recovered/Resolved]

NARRATIVE: CASE EVENT DATE: 20171028
